FAERS Safety Report 4837248-8 (Version None)
Quarter: 2005Q4

REPORT INFORMATION
  Report Type: 
  Country: None (occurrence: None)
  Receive Date: 20051122
  Receipt Date: 20051107
  Transmission Date: 20060501
  Serious: Yes (Hospitalization)
  Sender: FDA-Public Use
  Company Number: 005976

PATIENT
  Age: 43 Year
  Sex: Female
  Weight: 69.8 kg

DRUGS (3)
  1. WARFARIN SODIUM [Suspect]
     Indication: FACTOR V DEFICIENCY
     Dosage: 10 + 20 MG, QD, ORAL
     Route: 048
     Dates: start: 20020201, end: 20051101
  2. WARFARIN SODIUM [Suspect]
     Indication: FACTOR V DEFICIENCY
     Dosage: 10 + 20 MG, QD, ORAL
     Route: 048
     Dates: start: 20051101
  3. PREVACID [Concomitant]

REACTIONS (7)
  - FEELING COLD [None]
  - HYPOAESTHESIA [None]
  - MUSCULAR WEAKNESS [None]
  - OEDEMA PERIPHERAL [None]
  - PAIN IN EXTREMITY [None]
  - TEMPERATURE INTOLERANCE [None]
  - THROMBOSIS [None]
